FAERS Safety Report 5735086-5 (Version None)
Quarter: 2008Q2

REPORT INFORMATION
  Report Type: 
  Country: None (occurrence: None)
  Receive Date: 20080512
  Receipt Date: 20080501
  Transmission Date: 20081010
  Serious: Yes (Other)
  Sender: FDA-Public Use
  Company Number: ES-AMGEN-US277773

PATIENT
  Age: 73 Year
  Sex: Male

DRUGS (2)
  1. ENBREL [Suspect]
     Indication: SECONDARY AMYLOIDOSIS
     Route: 058
     Dates: start: 20060101
  2. PREDNISONE TAB [Concomitant]
     Route: 065

REACTIONS (1)
  - HEPATITIS B [None]
